FAERS Safety Report 21302176 (Version 2)
Quarter: 2022Q4

REPORT INFORMATION
  Report Type: Spontaneous
  Country: US (occurrence: US)
  Receive Date: 20220907
  Receipt Date: 20221115
  Transmission Date: 20230112
  Serious: Yes (Other)
  Sender: FDA-Public Use
  Company Number: US-PFIZER INC-PV202200058494

PATIENT
  Age: 73 Year
  Sex: Female

DRUGS (1)
  1. IBRANCE [Suspect]
     Active Substance: PALBOCICLIB
     Dosage: 125 MG
     Dates: start: 20220729

REACTIONS (4)
  - Urinary tract infection [Unknown]
  - Diarrhoea [Recovering/Resolving]
  - SARS-CoV-2 test positive [Unknown]
  - Confusional state [Unknown]

NARRATIVE: CASE EVENT DATE: 20221021
